FAERS Safety Report 8187024-6 (Version None)
Quarter: 2012Q1

REPORT INFORMATION
  Report Type: 
  Country: None (occurrence: None)
  Receive Date: 20120306
  Receipt Date: 20120301
  Transmission Date: 20120608
  Serious: Yes (Hospitalization)
  Sender: FDA-Public Use
  Company Number: FR-PFIZER INC-2012054717

PATIENT
  Age: 67 Year
  Sex: Male

DRUGS (1)
  1. ALDACTONE [Suspect]
     Indication: CARDIAC FAILURE
     Dosage: 75 MG, 1X/DAY
     Route: 048
     Dates: start: 20111017, end: 20111231

REACTIONS (3)
  - HYPERKALAEMIA [None]
  - SINOATRIAL BLOCK [None]
  - DYSPNOEA [None]
